FAERS Safety Report 7788063-7 (Version None)
Quarter: 2011Q3

REPORT INFORMATION
  Report Type: 
  Country: None (occurrence: None)
  Receive Date: 20110930
  Receipt Date: 20110921
  Transmission Date: 20111222
  Serious: Yes (Hospitalization, Other)
  Sender: FDA-Public Use
  Company Number: US-ELI_LILLY_AND_COMPANY-US201109006069

PATIENT
  Sex: Female
  Weight: 127.89 kg

DRUGS (7)
  1. BYETTA [Suspect]
     Dosage: 10 UG, BID
     Route: 058
     Dates: end: 20110831
  2. GLIMEPIRIDE [Concomitant]
     Dosage: UNK, QD
     Route: 048
     Dates: start: 20110921
  3. GLIPIZIDE [Concomitant]
     Indication: TYPE 2 DIABETES MELLITUS
     Dosage: 10 MG/KG, BID
     Route: 048
     Dates: end: 20110901
  4. BYETTA [Suspect]
     Indication: TYPE 2 DIABETES MELLITUS
     Dosage: 5 UG, BID
     Route: 058
  5. GLIPIZIDE [Concomitant]
     Dosage: 10 MG, BID
     Route: 048
     Dates: start: 20110920
  6. GLIMEPIRIDE [Concomitant]
     Indication: TYPE 2 DIABETES MELLITUS
     Dosage: UNK, QD
     Route: 048
     Dates: start: 20110801, end: 20110901
  7. BYETTA [Suspect]
     Dosage: 10 UG, BID
     Route: 058
     Dates: start: 20110920

REACTIONS (10)
  - HYPOGLYCAEMIC UNCONSCIOUSNESS [None]
  - URINARY BLADDER HAEMORRHAGE [None]
  - BLOOD GLUCOSE DECREASED [None]
  - BLOOD URINE PRESENT [None]
  - INCORRECT DOSE ADMINISTERED [None]
  - BLOOD GLUCOSE INCREASED [None]
  - BLADDER NEOPLASM [None]
  - FEELING ABNORMAL [None]
  - HYPOGLYCAEMIA UNAWARENESS [None]
  - DYSPNOEA [None]
